FAERS Safety Report 5268149-1 (Version None)
Quarter: 2007Q1

REPORT INFORMATION
  Report Type: 
  Country: None (occurrence: None)
  Receive Date: 20070319
  Receipt Date: 20070312
  Transmission Date: 20070707
  Serious: Yes (Life-Threatening, Hospitalization, Other)
  Sender: FDA-Public Use
  Company Number: GBWYE368430OCT06

PATIENT
  Age: 31 Year
  Sex: Female
  Weight: 62 kg

DRUGS (7)
  1. IBUPROFEN [Suspect]
     Indication: ANALGESIC EFFECT
     Dosage: UNKNOWN DOSE, THREE TIMES A DAY
     Route: 048
     Dates: start: 20060802, end: 20060814
  2. THIAMINE [Concomitant]
     Indication: ALCOHOLIC LIVER DISEASE
     Dates: start: 20060605, end: 20060818
  3. LACTULOSE [Concomitant]
     Indication: ALCOHOLIC LIVER DISEASE
     Route: 048
     Dates: start: 20060605
  4. SPIRONOLACTONE [Concomitant]
     Indication: ASCITES
     Route: 048
     Dates: start: 20060620, end: 20060818
  5. SPIRONOLACTONE [Concomitant]
     Indication: ALCOHOLIC LIVER DISEASE
  6. PREDNISOLONE [Suspect]
     Indication: HEPATITIS
     Route: 048
     Dates: start: 20060612, end: 20060618
  7. FOLIC ACID [Concomitant]
     Indication: ALCOHOLIC LIVER DISEASE
     Route: 048
     Dates: start: 20060608

REACTIONS (5)
  - ALCOHOL WITHDRAWAL SYNDROME [None]
  - DUODENAL ULCER [None]
  - ENCEPHALOPATHY [None]
  - HAEMATEMESIS [None]
  - MELAENA [None]
